FAERS Safety Report 23405234 (Version 1)
Quarter: 2024Q1

REPORT INFORMATION
  Report Type: Spontaneous
  Country: US (occurrence: None)
  Receive Date: 20240112
  Receipt Date: 20240112
  Transmission Date: 20240410
  Serious: No
  Sender: FDA-Public Use
  Company Number: None

PATIENT
  Age: 71 Year
  Sex: Female
  Weight: 56.7 kg

DRUGS (3)
  1. BUSPIRONE HYDROCHLORIDE [Suspect]
     Active Substance: BUSPIRONE HYDROCHLORIDE
     Indication: Anxiety
     Dosage: FREQUENCY : 3 TIMES A DAY;?
     Route: 048
     Dates: start: 20231211, end: 20231216
  2. CLONAZEPAM [Concomitant]
     Active Substance: CLONAZEPAM
  3. VITAMINS [Concomitant]
     Active Substance: VITAMINS

REACTIONS (8)
  - Blood pressure increased [None]
  - Heart rate increased [None]
  - Pulse abnormal [None]
  - Chest discomfort [None]
  - Panic reaction [None]
  - Tinnitus [None]
  - Dizziness [None]
  - Vertigo [None]

NARRATIVE: CASE EVENT DATE: 20231217
